FAERS Safety Report 5390798-0 (Version None)
Quarter: 2007Q3

REPORT INFORMATION
  Report Type: 
  Country: None (occurrence: None)
  Receive Date: 20070716
  Receipt Date: 20070712
  Transmission Date: 20080115
  Serious: Yes (Death, Hospitalization)
  Sender: FDA-Public Use
  Company Number: 2007SP012366

PATIENT
  Age: 56 Year
  Sex: Female
  Weight: 57 kg

DRUGS (6)
  1. INTRON A (INTERFERON ALFA-2B RECOMBINAT (INTERFERON ALFA-2B) [Suspect]
     Indication: RENAL CELL CARCINOMA STAGE UNSPECIFIED
     Dosage: 3 MIU;TIW;IM
     Route: 030
     Dates: start: 20060123, end: 20070608
  2. SORAFENIB (SORAFENIB) [Suspect]
     Indication: RENAL CELL CARCINOMA STAGE UNSPECIFIED
     Dosage: 400 MG;TID;PO
     Route: 048
     Dates: start: 20070206, end: 20070609
  3. SELBEX [Concomitant]
  4. LENDORMIN D [Concomitant]
  5. LOPEMIN [Concomitant]
  6. LOXONIN (LOXPROFEN) [Suspect]
     Indication: PAIN
     Dosage: 120 MG;BID;PO
     Route: 048
     Dates: start: 20060823, end: 20070611

REACTIONS (10)
  - ANAEMIA [None]
  - ANOREXIA [None]
  - CARDIO-RESPIRATORY ARREST [None]
  - DIARRHOEA [None]
  - DISSEMINATED INTRAVASCULAR COAGULATION [None]
  - DRUG TOXICITY [None]
  - HAEMOLYSIS [None]
  - INJECTION SITE HAEMORRHAGE [None]
  - PYREXIA [None]
  - THROMBOTIC THROMBOCYTOPENIC PURPURA [None]
